FAERS Safety Report 13718654 (Version 4)
Quarter: 2017Q3

REPORT INFORMATION
  Report Type: Spontaneous
  Country: US (occurrence: US)
  Receive Date: 20170705
  Receipt Date: 20170918
  Transmission Date: 20171127
  Serious: Yes (Hospitalization, Other)
  Sender: FDA-Public Use
  Company Number: US-SAOL THERAPEUTICS-2017SAO01034

PATIENT
  Age: 63 Year
  Sex: Female

DRUGS (4)
  1. BACLOFEN. [Suspect]
     Active Substance: BACLOFEN
     Indication: SPINAL PAIN
     Dosage: 0.1803 MG, \DAY
     Route: 037
  2. BUPIVACAINE. [Suspect]
     Active Substance: BUPIVACAINE
     Dosage: 0.10803 MG, \DAY
     Route: 037
  3. HYDROCODONE [Concomitant]
     Active Substance: HYDROCODONE
  4. MORPHINE [Suspect]
     Active Substance: MORPHINE
     Dosage: 0.9016 MG, \DAY
     Route: 037

REACTIONS (6)
  - Drug ineffective for unapproved indication [Recovered/Resolved]
  - Drug withdrawal syndrome [Recovered/Resolved]
  - Psychological trauma [Unknown]
  - Blood glucose decreased [Unknown]
  - Restlessness [Recovered/Resolved]
  - Malaise [Unknown]

NARRATIVE: CASE EVENT DATE: 201705
